FAERS Safety Report 8499033-8 (Version None)
Quarter: 2012Q3

REPORT INFORMATION
  Report Type: 
  Country: None (occurrence: None)
  Receive Date: 20120710
  Receipt Date: 20120702
  Transmission Date: 20120928
  Serious: Yes (Hospitalization)
  Sender: FDA-Public Use
  Company Number: US-AMGEN-USASP2012040647

PATIENT
  Age: 55 Year
  Sex: Female

DRUGS (2)
  1. OXAPROZIN [Concomitant]
     Dosage: UNK
  2. ENBREL [Suspect]
     Indication: RHEUMATOID ARTHRITIS
     Dosage: 25 MG, 2 TIMES/WK
     Dates: start: 20020101

REACTIONS (3)
  - WRIST FRACTURE [None]
  - FALL [None]
  - ACCIDENT [None]
